FAERS Safety Report 5705222-5 (Version None)
Quarter: 2008Q2

REPORT INFORMATION
  Report Type: 
  Country: None (occurrence: None)
  Receive Date: 20080410
  Receipt Date: 20080328
  Transmission Date: 20081010
  Serious: Yes (Other)
  Sender: FDA-Public Use
  Company Number: S08-FRA-01341-01

PATIENT
  Age: 80 Year
  Sex: Female

DRUGS (3)
  1. CITALOPRAM HYDROBROMIDE [Suspect]
     Dates: end: 20071115
  2. PROTELOS (STRONTIUM RANELATE) [Suspect]
     Dates: end: 20071213
  3. XANAX [Concomitant]

REACTIONS (1)
  - APLASIA PURE RED CELL [None]
